FAERS Safety Report 14405500 (Version 1)
Quarter: 2018Q1

REPORT INFORMATION
  Report Type: Spontaneous
  Country: US (occurrence: US)
  Receive Date: 20180118
  Receipt Date: 20180118
  Transmission Date: 20180509
  Serious: No
  Sender: FDA-Public Use
  Company Number: US-PFIZER INC-2018022289

PATIENT
  Age: 83 Year
  Sex: Female

DRUGS (1)
  1. NEURONTIN [Suspect]
     Active Substance: GABAPENTIN
     Indication: RADICULOPATHY
     Dosage: UNK

REACTIONS (2)
  - Drug hypersensitivity [Unknown]
  - Product use in unapproved indication [Unknown]
